FAERS Safety Report 23304372 (Version 1)
Quarter: 2023Q4

REPORT INFORMATION
  Report Type: Spontaneous
  Country: US (occurrence: US)
  Receive Date: 20231218
  Receipt Date: 20231218
  Transmission Date: 20240110
  Serious: Yes (Hospitalization)
  Sender: FDA-Public Use
  Company Number: US-AMGEN-USASP2023220971

PATIENT
  Age: 55 Year
  Sex: Female

DRUGS (2)
  1. AIMOVIG [Suspect]
     Active Substance: ERENUMAB-AOOE
     Indication: Migraine
     Dosage: 70 MILLIGRAM, QMO
     Route: 058
     Dates: start: 202310
  2. EMGALITY [Concomitant]
     Active Substance: GALCANEZUMAB-GNLM
     Indication: Migraine
     Dosage: UNK

REACTIONS (7)
  - Migraine [Recovering/Resolving]
  - Product communication issue [Unknown]
  - Device difficult to use [Unknown]
  - Therapeutic response shortened [Unknown]
  - Nasal congestion [Not Recovered/Not Resolved]
  - Dizziness [Recovering/Resolving]
  - Ear congestion [Recovering/Resolving]

NARRATIVE: CASE EVENT DATE: 20230101
